FAERS Safety Report 13306969 (Version 9)
Quarter: 2017Q3

REPORT INFORMATION
  Report Type: Report from Study
  Country: US (occurrence: US)
  Receive Date: 20170308
  Receipt Date: 20170926
  Transmission Date: 20171127
  Serious: Yes (Hospitalization, Other)
  Sender: FDA-Public Use
  Company Number: US-BIOGEN-2017BI00367151

PATIENT
  Age: 42 Year
  Sex: Male

DRUGS (2)
  1. ZINBRYTA [Suspect]
     Active Substance: DACLIZUMAB
     Route: 065
     Dates: end: 20170224
  2. ZINBRYTA [Suspect]
     Active Substance: DACLIZUMAB
     Indication: MULTIPLE SCLEROSIS
     Route: 058
     Dates: start: 20161208, end: 20170217

REACTIONS (8)
  - Depression suicidal [Recovered/Resolved]
  - Fall [Recovered/Resolved]
  - Post procedural complication [Unknown]
  - Accident [Recovered/Resolved]
  - Multiple sclerosis relapse [Recovered/Resolved]
  - Hip fracture [Not Recovered/Not Resolved]
  - Blindness [Not Recovered/Not Resolved]
  - Dysstasia [Unknown]

NARRATIVE: CASE EVENT DATE: 20170223
